FAERS Safety Report 8674670 (Version 2)
Quarter: 2012Q4

REPORT INFORMATION
  Report Type: 
  Country: US (occurrence: US)
  Receive Date: 20120720
  Receipt Date: 20120902
  Transmission Date: 20130627
  Serious: Yes (Hospitalization)
  Sender: FDA-Public Use
  Company Number: US-PFIZER INC-2012174163

PATIENT
  Sex: Male

DRUGS (2)
  1. SUTENT [Suspect]
     Dosage: 50 mg, (unknown frequency)
  2. SUTENT [Suspect]
     Dosage: 25 mg, (unknown frequency)

REACTIONS (3)
  - Drug intolerance [Unknown]
  - Nausea [Unknown]
  - Fatigue [Unknown]
